FAERS Safety Report 12758071 (Version 3)
Quarter: 2016Q4

REPORT INFORMATION
  Report Type: Spontaneous
  Country: US (occurrence: US)
  Receive Date: 20160919
  Receipt Date: 20161111
  Transmission Date: 20170207
  Serious: Yes (Hospitalization, Other)
  Sender: FDA-Public Use
  Company Number: US-UNITED THERAPEUTICS-UNT-2016-014466

PATIENT
  Age: 54 Year
  Sex: Female
  Weight: 92.97 kg

DRUGS (1)
  1. REMODULIN [Suspect]
     Active Substance: TREPROSTINIL
     Indication: PULMONARY HYPERTENSION
     Dosage: 0.047 ?G/KG, CONTINUING
     Route: 041
     Dates: start: 20091125

REACTIONS (4)
  - Cardiac failure [Unknown]
  - Haemoglobin decreased [Unknown]
  - Gastrointestinal infection [Unknown]
  - Fluid overload [Unknown]

NARRATIVE: CASE EVENT DATE: 2016
